FAERS Safety Report 4452220-8 (Version None)
Quarter: 2004Q3

REPORT INFORMATION
  Report Type: 
  Country: None (occurrence: None)
  Receive Date: 20040917
  Receipt Date: 20040908
  Transmission Date: 20050211
  Serious: Yes (Hospitalization, Other)
  Sender: FDA-Public Use
  Company Number: US-JNJFOC-20040401594

PATIENT
  Sex: Female
  Weight: 54.43 kg

DRUGS (1)
  1. ORTHO TRI-CYCLEN [Suspect]
     Indication: DRUG USE FOR UNKNOWN INDICATION
     Route: 049

REACTIONS (6)
  - BACTERIA URINE [None]
  - CALCULUS URETERIC [None]
  - DYSURIA [None]
  - NEPHROLITHIASIS [None]
  - PROTEIN URINE PRESENT [None]
  - URINE ABNORMALITY [None]
